FAERS Safety Report 23167344 (Version 3)
Quarter: 2023Q4

REPORT INFORMATION
  Report Type: Report from Study
  Country: US (occurrence: US)
  Receive Date: 20231109
  Receipt Date: 20231207
  Transmission Date: 20240110
  Serious: Yes (Hospitalization)
  Sender: FDA-Public Use
  Company Number: US-Eisai-EC-2023-152352

PATIENT
  Age: 74 Year
  Sex: Female

DRUGS (11)
  1. LENVIMA [Suspect]
     Active Substance: LENVATINIB
     Indication: Endometrial cancer
     Route: 048
     Dates: start: 20231025, end: 20231113
  2. LENVIMA [Suspect]
     Active Substance: LENVATINIB
     Indication: Breast cancer female
     Route: 048
     Dates: start: 202311, end: 202311
  3. LENVIMA [Suspect]
     Active Substance: LENVATINIB
     Indication: Skin cancer
     Route: 048
     Dates: start: 20231123
  4. NIFEDIPINE [Suspect]
     Active Substance: NIFEDIPINE
     Indication: Hypertension
     Dosage: DOSE AND FREQUENCY UNKNOWN
  5. ELIQUIS [Concomitant]
     Active Substance: APIXABAN
     Indication: Product used for unknown indication
     Dosage: FREQUENCY UNKNOWN
  6. CENTRUM SILVER WOMEN [Concomitant]
     Indication: Product used for unknown indication
     Dosage: FREQUENCY UNKNOWN
  7. KEYTRUDA [Concomitant]
     Active Substance: PEMBROLIZUMAB
     Indication: Endometrial cancer
     Dosage: DOSE AND FREQUENCY UNKNOWN
     Route: 042
     Dates: start: 20231122
  8. KEYTRUDA [Concomitant]
     Active Substance: PEMBROLIZUMAB
     Dosage: DOSE AND FREQUENCY UNKNOWN
     Route: 042
  9. SUDAFED [Concomitant]
     Active Substance: PSEUDOEPHEDRINE HYDROCHLORIDE
  10. TRAVOPROST [Concomitant]
     Active Substance: TRAVOPROST
  11. VITAMIN D3 [Concomitant]
     Active Substance: CHOLECALCIFEROL

REACTIONS (7)
  - Blood pressure increased [Recovering/Resolving]
  - Diarrhoea [Unknown]
  - Dyspepsia [Unknown]
  - Muscle spasms [Not Recovered/Not Resolved]
  - Platelet count decreased [Not Recovered/Not Resolved]
  - Pain in extremity [Not Recovered/Not Resolved]
  - Urine abnormality [Recovering/Resolving]

NARRATIVE: CASE EVENT DATE: 20230101
